FAERS Safety Report 5852374-2 (Version None)
Quarter: 2008Q3

REPORT INFORMATION
  Report Type: 
  Country: None (occurrence: None)
  Receive Date: 20080821
  Receipt Date: 20080820
  Transmission Date: 20090109
  Serious: Yes (Disabling, Other)
  Sender: FDA-Public Use
  Company Number: GB-BRISTOL-MYERS SQUIBB COMPANY-14307995

PATIENT
  Age: 30 Year
  Sex: Male

DRUGS (3)
  1. EFAVIRENZ [Suspect]
     Indication: HIV INFECTION
     Route: 048
     Dates: start: 20071122, end: 20080326
  2. TRUVADA [Concomitant]
     Indication: HIV INFECTION
     Route: 048
     Dates: start: 20071201
  3. MULTI-VITAMINS [Concomitant]
     Route: 048
     Dates: start: 20071201

REACTIONS (8)
  - ACTIVITIES OF DAILY LIVING IMPAIRED [None]
  - AGGRESSION [None]
  - ANGER [None]
  - DRUG LEVEL INCREASED [None]
  - IRRITABILITY [None]
  - MOOD SWINGS [None]
  - NIGHT SWEATS [None]
  - NIGHTMARE [None]
